FAERS Safety Report 16029863 (Version 2)
Quarter: 2019Q2

REPORT INFORMATION
  Report Type: Spontaneous
  Country: US (occurrence: US)
  Receive Date: 20190304
  Receipt Date: 20190416
  Transmission Date: 20190711
  Serious: No
  Sender: FDA-Public Use
  Company Number: US-BAYER-2019-042109

PATIENT
  Age: 25 Year
  Sex: Female

DRUGS (2)
  1. MIRENA [Suspect]
     Active Substance: LEVONORGESTREL
     Indication: CONTRACEPTION
  2. MIRENA [Suspect]
     Active Substance: LEVONORGESTREL
     Indication: CONTRACEPTION
     Dosage: 20 MCG/24HR, CONT
     Route: 015
     Dates: start: 201303

REACTIONS (4)
  - Device use issue [None]
  - Abdominal pain lower [Not Recovered/Not Resolved]
  - Chlamydia test positive [Recovered/Resolved]
  - Bacterial vulvovaginitis [Recovered/Resolved]

NARRATIVE: CASE EVENT DATE: 20180216
